FAERS Safety Report 24027397 (Version 1)
Quarter: 2024Q2

REPORT INFORMATION
  Report Type: Spontaneous
  Country: US (occurrence: US)
  Receive Date: 20240628
  Receipt Date: 20240628
  Transmission Date: 20240716
  Serious: Yes (Death, Hospitalization)
  Sender: FDA-Public Use
  Company Number: US-STRIDES ARCOLAB LIMITED-2024SP007572

PATIENT
  Age: 70 Year
  Sex: Male

DRUGS (4)
  1. ETOPOSIDE [Suspect]
     Active Substance: ETOPOSIDE
     Indication: Neuroendocrine tumour of the lung
     Dosage: UNK, CYCLICAL (COMPLETED 4 CYCLES OF TREATMENT)
     Route: 065
  2. ETOPOSIDE [Suspect]
     Active Substance: ETOPOSIDE
     Indication: Small cell lung cancer limited stage
  3. CARBOPLATIN [Concomitant]
     Active Substance: CARBOPLATIN
     Indication: Neuroendocrine tumour of the lung
     Dosage: UNK, CYCLICAL (COMPLETED 4 CYCLES OF TREATMENT)
     Route: 065
  4. CARBOPLATIN [Concomitant]
     Active Substance: CARBOPLATIN
     Indication: Small cell lung cancer limited stage

REACTIONS (3)
  - Pneumonitis [Fatal]
  - Pulmonary fibrosis [Fatal]
  - Disease progression [Fatal]
